FAERS Safety Report 23262358 (Version 1)
Quarter: 2023Q4

REPORT INFORMATION
  Report Type: Spontaneous
  Country: CA (occurrence: None)
  Receive Date: 20231205
  Receipt Date: 20231205
  Transmission Date: 20240109
  Serious: Yes (Other)
  Sender: FDA-Public Use
  Company Number: CA-ROCHE-3467601

PATIENT
  Age: 6 Year
  Sex: Female

DRUGS (2)
  1. SOMATROPIN [Suspect]
     Active Substance: SOMATROPIN
     Indication: Short stature
     Dosage: DOSAGE FORM: NOT SPECIFIED
     Route: 058
  2. SOMATROPIN [Suspect]
     Active Substance: SOMATROPIN
     Route: 058

REACTIONS (1)
  - Syncope [Unknown]
